FAERS Safety Report 10016258 (Version 2)
Quarter: 2014Q2

REPORT INFORMATION
  Report Type: Report from Study
  Country: AU (occurrence: AU)
  Receive Date: 20140317
  Receipt Date: 20140402
  Transmission Date: 20141212
  Serious: Yes (Other)
  Sender: FDA-Public Use
  Company Number: AU-BRISTOL-MYERS SQUIBB COMPANY-20417028

PATIENT
  Age: 80 Year
  Sex: Female

DRUGS (5)
  1. ORENCIA [Suspect]
     Indication: RHEUMATOID ARTHRITIS
     Route: 042
     Dates: start: 20110301
  2. METHOTREXATE [Concomitant]
  3. FOLIC ACID [Concomitant]
  4. GTN SPRAY [Concomitant]
  5. ISORDIL [Concomitant]

REACTIONS (1)
  - Cataract [Unknown]
